FAERS Safety Report 21423367 (Version 1)
Quarter: 2022Q4

REPORT INFORMATION
  Report Type: Report from Study
  Country: ID (occurrence: None)
  Receive Date: 20221007
  Receipt Date: 20221007
  Transmission Date: 20230113
  Serious: Yes (Death)
  Sender: FDA-Public Use
  Company Number: 2022A339560

PATIENT
  Age: 23886 Day
  Sex: Male

DRUGS (5)
  1. IMFINZI [Suspect]
     Active Substance: DURVALUMAB
     Indication: Non-small cell lung cancer
     Route: 042
     Dates: start: 20220122
  2. IMFINZI [Suspect]
     Active Substance: DURVALUMAB
     Indication: Small cell lung cancer
     Route: 042
     Dates: start: 20220122
  3. ETOPOSIDE [Concomitant]
     Active Substance: ETOPOSIDE
  4. CARBOPLATIN [Concomitant]
     Active Substance: CARBOPLATIN
  5. CISPLATIN [Concomitant]
     Active Substance: CISPLATIN

REACTIONS (1)
  - Death [Fatal]

NARRATIVE: CASE EVENT DATE: 20220925
